FAERS Safety Report 7919099-0 (Version None)
Quarter: 2011Q4

REPORT INFORMATION
  Report Type: 
  Country: None (occurrence: None)
  Receive Date: 20111116
  Receipt Date: 20090428
  Transmission Date: 20120403
  Serious: Yes (Hospitalization, Other)
  Sender: FDA-Public Use
  Company Number: PHHY2009TW60919

PATIENT
  Sex: Female

DRUGS (3)
  1. GLEEVEC [Suspect]
     Dosage: 600 MG, UNK
     Route: 048
  2. GLEEVEC [Suspect]
     Indication: GASTROINTESTINAL STROMAL TUMOUR
     Dosage: 600 MG, DAILY (REGULARLY 2 PILLS IN THE MORNING AND EVENING)
     Route: 048
     Dates: start: 20080610
  3. GLEEVEC [Suspect]
     Dosage: 300 MG, BID
     Route: 048

REACTIONS (24)
  - LACRIMATION INCREASED [None]
  - EYELID OEDEMA [None]
  - DRY EYE [None]
  - CHOLELITHIASIS [None]
  - DYSPHAGIA [None]
  - CHILLS [None]
  - DECREASED APPETITE [None]
  - ABDOMINAL DISCOMFORT [None]
  - ORBITAL OEDEMA [None]
  - OESOPHAGEAL PAIN [None]
  - EYE PRURITUS [None]
  - ARTHRALGIA [None]
  - CHEST PAIN [None]
  - DYSURIA [None]
  - ABDOMINAL PAIN [None]
  - PRURITUS [None]
  - DIARRHOEA [None]
  - MUSCLE SPASMS [None]
  - PLEURAL EFFUSION [None]
  - PANCREATITIS [None]
  - RASH [None]
  - DRY SKIN [None]
  - PROCTALGIA [None]
  - EYE OEDEMA [None]
